FAERS Safety Report 8245052-6 (Version None)
Quarter: 2012Q1

REPORT INFORMATION
  Report Type: 
  Country: None (occurrence: None)
  Receive Date: 20120329
  Receipt Date: 20120322
  Transmission Date: 20120608
  Serious: Yes (Hospitalization)
  Sender: FDA-Public Use
  Company Number: US-GLAXOSMITHKLINE-A0898258A

PATIENT
  Age: 70 Year
  Sex: Male
  Weight: 84.1 kg

DRUGS (5)
  1. MICARDIS [Concomitant]
  2. CIALIS [Concomitant]
  3. INSULIN [Concomitant]
  4. AVANDIA [Suspect]
     Indication: DIABETES MELLITUS
     Route: 048
     Dates: start: 20020101
  5. VYTORIN [Concomitant]

REACTIONS (7)
  - ATRIAL FIBRILLATION [None]
  - CARDIAC FAILURE CONGESTIVE [None]
  - CORONARY ARTERY BYPASS [None]
  - ACUTE PULMONARY OEDEMA [None]
  - MITRAL VALVE REPLACEMENT [None]
  - CEREBROVASCULAR DISORDER [None]
  - MYOCARDIAL INFARCTION [None]
